FAERS Safety Report 12816339 (Version 1)
Quarter: 2016Q4

REPORT INFORMATION
  Report Type: Spontaneous
  Country: DE (occurrence: DE)
  Receive Date: 20161006
  Receipt Date: 20161006
  Transmission Date: 20170207
  Serious: No
  Sender: FDA-Public Use
  Company Number: DE-NOVEN PHARMACEUTICALS, INC.-DE2016001306

PATIENT

DRUGS (1)
  1. ESTRADIOL/NORETHISTERONE ACETATE [Suspect]
     Active Substance: ESTRADIOL\NORETHINDRONE ACETATE
     Indication: PRODUCT USED FOR UNKNOWN INDICATION
     Dosage: TWO PATCHES OF PHASE I FOLLOWED BY 2 PATCHES OF PHASE II
     Route: 065
     Dates: start: 201511

REACTIONS (2)
  - Menstrual disorder [Unknown]
  - Wrong technique in product usage process [Unknown]
